FAERS Safety Report 21850815 (Version 2)
Quarter: 2023Q1

REPORT INFORMATION
  Report Type: Spontaneous
  Country: JP (occurrence: JP)
  Receive Date: 20230111
  Receipt Date: 20230214
  Transmission Date: 20230418
  Serious: Yes (Hospitalization, Other)
  Sender: FDA-Public Use
  Company Number: JP-ONO-2022JP021939

PATIENT
  Age: 69 Year
  Sex: Male

DRUGS (9)
  1. OPDIVO [Suspect]
     Active Substance: NIVOLUMAB
     Indication: Gastric cancer
     Dosage: UNK
     Route: 041
     Dates: start: 20220106
  2. OPDIVO [Suspect]
     Active Substance: NIVOLUMAB
     Dosage: UNK
     Route: 041
     Dates: start: 20220422, end: 20220624
  3. OXALIPLATIN [Concomitant]
     Active Substance: OXALIPLATIN
     Indication: Gastric cancer
     Dosage: UNK
     Dates: start: 20220106
  4. OXALIPLATIN [Concomitant]
     Active Substance: OXALIPLATIN
     Dosage: UNK
     Dates: start: 20220422, end: 20220624
  5. GIMERACIL\OTERACIL\TEGAFUR [Concomitant]
     Active Substance: GIMERACIL\OTERACIL\TEGAFUR
     Indication: Gastric cancer
     Dosage: UNK
     Dates: start: 20220106
  6. PACLITAXEL [Concomitant]
     Active Substance: PACLITAXEL
     Indication: Gastric cancer
     Dosage: UNK, QW, 1 ST COURSE
     Dates: start: 20220218
  7. PACLITAXEL [Concomitant]
     Active Substance: PACLITAXEL
     Dosage: 2 ND COURSE
     Dates: start: 20220316
  8. LEVOLEUCOVORIN CALCIUM [Concomitant]
     Active Substance: LEVOLEUCOVORIN CALCIUM
     Indication: Gastric cancer
     Dosage: UNK
     Dates: start: 20220422, end: 20220624
  9. FLUOROURACIL [Concomitant]
     Active Substance: FLUOROURACIL
     Indication: Gastric cancer
     Dosage: UNK
     Dates: start: 20220422, end: 20220624

REACTIONS (6)
  - Decreased appetite [Recovering/Resolving]
  - Malaise [Unknown]
  - Pyrexia [Recovering/Resolving]
  - Myalgia [Recovering/Resolving]
  - Immune-mediated enterocolitis [Recovering/Resolving]
  - Immune-mediated hypophysitis [Unknown]

NARRATIVE: CASE EVENT DATE: 20220704
